FAERS Safety Report 17618430 (Version 1)
Quarter: 2020Q2

REPORT INFORMATION
  Report Type: Report from Study
  Country: None (occurrence: FR)
  Receive Date: 20200402
  Receipt Date: 20200402
  Transmission Date: 20200713
  Serious: Yes (Hospitalization)
  Sender: FDA-Public Use
  Company Number: FR-ABBVIE-20P-056-3281921-00

PATIENT
  Age: 11 Year
  Sex: Male
  Weight: 18 kg

DRUGS (22)
  1. VENETOCLAX. [Suspect]
     Active Substance: VENETOCLAX
     Route: 050
     Dates: start: 20200101, end: 20200112
  2. VENETOCLAX. [Suspect]
     Active Substance: VENETOCLAX
     Indication: REFRACTORY CANCER
     Route: 050
     Dates: start: 20191231, end: 20191231
  3. CHLORHEXIDIN [Concomitant]
     Active Substance: CHLORHEXIDINE
     Indication: DENTAL DISORDER PROPHYLAXIS
     Route: 061
     Dates: start: 20191230
  4. ONDANSETRON [Concomitant]
     Active Substance: ONDANSETRON
     Indication: PROPHYLAXIS OF NAUSEA AND VOMITING
     Route: 042
     Dates: start: 20191230
  5. HYDROXYCARBAMIDE [Concomitant]
     Active Substance: HYDROXYUREA
     Indication: BONE MARROW DISORDER
     Route: 048
     Dates: start: 20191223
  6. ACIDE TRANEXAMIQUE [Concomitant]
     Indication: HAEMORRHAGE
     Route: 061
     Dates: start: 20190113
  7. RASBURICASE [Concomitant]
     Active Substance: RASBURICASE
     Indication: PROPHYLAXIS
     Route: 065
     Dates: start: 20191230, end: 20191230
  8. FASTURTEC [Concomitant]
     Active Substance: RASBURICASE
     Indication: PROPHYLAXIS
     Route: 042
     Dates: start: 20191230
  9. VENETOCLAX. [Suspect]
     Active Substance: VENETOCLAX
     Indication: RECURRENT CANCER
     Route: 050
     Dates: start: 20191230, end: 20191230
  10. VENETOCLAX. [Suspect]
     Active Substance: VENETOCLAX
     Route: 050
     Dates: start: 20200224
  11. AZACITIDINE. [Suspect]
     Active Substance: AZACITIDINE
     Indication: RECURRENT CANCER
     Dosage: DAYS 1 THROUGH 7 ONCE EVERY 28 DAYS
     Route: 042
     Dates: start: 20200102
  12. MICAFUNGINE [Concomitant]
     Active Substance: MICAFUNGIN
     Indication: NEUTROPENIA
     Route: 042
     Dates: start: 20200127
  13. POLARAMINE [Concomitant]
     Active Substance: DEXCHLORPHENIRAMINE MALEATE
     Indication: CHEMOTHERAPY
     Dosage: EVERY 2 DAYS
     Route: 042
     Dates: start: 20200103
  14. ZINC. [Concomitant]
     Active Substance: ZINC
     Indication: DENTAL DISORDER PROPHYLAXIS
     Route: 061
     Dates: start: 20191230
  15. BACTRIM [Concomitant]
     Active Substance: SULFAMETHOXAZOLE\TRIMETHOPRIM
     Indication: PROPHYLAXIS OF NAUSEA AND VOMITING
     Route: 042
     Dates: start: 20191230
  16. LEVOCETIRIZINE [Concomitant]
     Active Substance: LEVOCETIRIZINE
     Indication: ANTIALLERGIC THERAPY
     Route: 048
     Dates: start: 20191230
  17. VENETOCLAX. [Suspect]
     Active Substance: VENETOCLAX
     Route: 050
     Dates: start: 20200113, end: 20200216
  18. AZACITIDINE. [Suspect]
     Active Substance: AZACITIDINE
     Indication: REFRACTORY CANCER
  19. DEXTROSE 5% IN WATER [Concomitant]
     Indication: PROPHYLAXIS
     Route: 042
     Dates: start: 20191230, end: 20200109
  20. MYCAMINE [Concomitant]
     Active Substance: MICAFUNGIN SODIUM
     Indication: ANTIFUNGAL PROPHYLAXIS
     Route: 042
     Dates: start: 20200127
  21. SODIUM BICARBONATE. [Concomitant]
     Active Substance: SODIUM BICARBONATE
     Indication: DENTAL DISORDER PROPHYLAXIS
     Route: 061
     Dates: start: 20191230
  22. HYDROCORTISONE. [Concomitant]
     Active Substance: HYDROCORTISONE
     Indication: PRODUCT USED FOR UNKNOWN INDICATION
     Dosage: EVERY 2 DAYS
     Route: 042
     Dates: start: 20200103

REACTIONS (2)
  - Febrile neutropenia [Recovered/Resolved]
  - Influenza [Recovered/Resolved]

NARRATIVE: CASE EVENT DATE: 20200216
